FAERS Safety Report 8370718-7 (Version None)
Quarter: 2012Q2

REPORT INFORMATION
  Report Type: 
  Country: None (occurrence: None)
  Receive Date: 20120517
  Receipt Date: 20120515
  Transmission Date: 20120825
  Serious: Yes (Hospitalization, Other)
  Sender: FDA-Public Use
  Company Number: ADR-2011-10888

PATIENT
  Age: 61 Year
  Sex: Male

DRUGS (2)
  1. LIORESAL [Suspect]
     Indication: MUSCLE SPASTICITY
     Dosage: SEE IMAGE
  2. MORPHINE [Concomitant]

REACTIONS (6)
  - IMPLANT SITE DISCHARGE [None]
  - WOUND DEHISCENCE [None]
  - PURULENT DISCHARGE [None]
  - INCISION SITE ERYTHEMA [None]
  - DEVICE LEAKAGE [None]
  - DEVICE RELATED INFECTION [None]
